FAERS Safety Report 12242186 (Version 1)
Quarter: 2016Q2

REPORT INFORMATION
  Report Type: Spontaneous
  Country: US (occurrence: None)
  Receive Date: 20160405
  Receipt Date: 20160405
  Transmission Date: 20160815
  Serious: No
  Sender: FDA-Public Use
  Company Number: None

PATIENT
  Age: 82 Year
  Sex: Male
  Weight: 84.7 kg

DRUGS (1)
  1. IDELALISIB [Suspect]
     Active Substance: IDELALISIB
     Indication: NON-HODGKIN^S LYMPHOMA
     Route: 048
     Dates: start: 20151207

REACTIONS (4)
  - Swollen tongue [None]
  - Non-Hodgkin^s lymphoma [None]
  - Speech disorder [None]
  - Condition aggravated [None]

NARRATIVE: CASE EVENT DATE: 20151231
